FAERS Safety Report 6490451-6 (Version None)
Quarter: 2009Q4

REPORT INFORMATION
  Report Type: 
  Country: None (occurrence: None)
  Receive Date: 20091211
  Receipt Date: 20091203
  Transmission Date: 20100525
  Serious: Yes (Death)
  Sender: FDA-Public Use
  Company Number: FR-NAPPMUNDI-GBR-2009-0005558

PATIENT
  Sex: Male

DRUGS (4)
  1. OXYCONTIN [Suspect]
     Indication: PAIN
     Dosage: 20 MG, BID
     Route: 048
  2. MOXONIDINE [Concomitant]
     Indication: HYPERTENSION
     Dosage: 0.2 MG, DAILY
     Route: 048
     Dates: start: 20070101
  3. ATARAX [Concomitant]
     Indication: ANXIETY
     Dosage: 25 MG, DAILY
     Route: 048
     Dates: start: 20070101
  4. TRANSULOSE [Concomitant]
     Indication: CONSTIPATION
     Dosage: UNK
     Route: 048
     Dates: start: 20070101

REACTIONS (2)
  - MYOCARDIAL INFARCTION [None]
  - SYMPTOM MASKED [None]
